FAERS Safety Report 11424629 (Version 2)
Quarter: 2015Q4

REPORT INFORMATION
  Report Type: Spontaneous
  Country: VE (occurrence: VE)
  Receive Date: 20150827
  Receipt Date: 20151015
  Transmission Date: 20160304
  Serious: Yes (Hospitalization)
  Sender: FDA-Public Use
  Company Number: PHHY2015VE103721

PATIENT
  Sex: Male

DRUGS (4)
  1. CISPLATIN. [Concomitant]
     Active Substance: CISPLATIN
     Indication: CHEMOTHERAPY
     Route: 065
  2. CATAFLAM [Suspect]
     Active Substance: DICLOFENAC POTASSIUM
     Indication: PYREXIA
     Dosage: 50 MG, UNK
     Route: 048
  3. ATAMEL [Concomitant]
     Indication: PYREXIA
     Route: 065
  4. EXFORGE HCT [Suspect]
     Active Substance: AMLODIPINE BESYLATE\HYDROCHLOROTHIAZIDE\VALSARTAN
     Indication: HYPERTENSION
     Dosage: 160/5, UNK
     Route: 048

REACTIONS (11)
  - Decreased immune responsiveness [Unknown]
  - Asthenia [Unknown]
  - Lung neoplasm malignant [Unknown]
  - General physical health deterioration [Unknown]
  - Blood chromogranin A increased [Unknown]
  - Injury [Unknown]
  - Platelet count decreased [Unknown]
  - Decreased appetite [Unknown]
  - Haemoglobin decreased [Unknown]
  - Diarrhoea [Unknown]
  - Blood pressure decreased [Unknown]
